FAERS Safety Report 5739078-1 (Version None)
Quarter: 2008Q2

REPORT INFORMATION
  Report Type: 
  Country: None (occurrence: None)
  Receive Date: 20080515
  Receipt Date: 20080506
  Transmission Date: 20081010
  Serious: Yes (Hospitalization)
  Sender: FDA-Public Use
  Company Number: FR-ASTRAZENECA-2008CG00682

PATIENT
  Age: 25176 Day
  Sex: Female

DRUGS (10)
  1. NEXIUM [Suspect]
     Route: 048
     Dates: start: 20080129, end: 20080214
  2. SOLUPRED [Suspect]
     Route: 048
     Dates: start: 20080129, end: 20080214
  3. TAXOTERE [Suspect]
     Route: 042
     Dates: start: 20080129, end: 20080129
  4. DIANTALVIC [Suspect]
     Route: 065
     Dates: end: 20080214
  5. DURAGESIC-100 [Suspect]
     Route: 065
     Dates: end: 20080214
  6. SERETIDE [Suspect]
     Route: 065
     Dates: end: 20080214
  7. GEMZAR [Concomitant]
     Indication: BRONCHIAL CARCINOMA
     Dates: start: 20070501, end: 20071101
  8. GEMZAR [Concomitant]
     Indication: METASTASES TO PLEURA
     Dates: start: 20070501, end: 20071101
  9. CARBOPLATIN [Concomitant]
     Indication: BRONCHIAL CARCINOMA
     Dates: start: 20070501, end: 20071101
  10. CARBOPLATIN [Concomitant]
     Indication: METASTASES TO PLEURA
     Dates: start: 20070501, end: 20071101

REACTIONS (2)
  - LUNG DISORDER [None]
  - RESPIRATORY DISTRESS [None]
